FAERS Safety Report 24890796 (Version 1)
Quarter: 2025Q1

REPORT INFORMATION
  Report Type: Spontaneous
  Country: CN (occurrence: CN)
  Receive Date: 20250127
  Receipt Date: 20250127
  Transmission Date: 20250409
  Serious: Yes (Hospitalization)
  Sender: PAREXEL
  Company Number: CN-SHANGHAI JUNSHI BIOSCIENCES CO., LTD.-CN2025012813

PATIENT

DRUGS (6)
  1. TORIPALIMAB [Suspect]
     Active Substance: TORIPALIMAB
     Indication: Lung neoplasm malignant
  2. TORIPALIMAB [Suspect]
     Active Substance: TORIPALIMAB
     Route: 041
     Dates: start: 20241214, end: 20241214
  3. CARBOPLATIN [Concomitant]
     Active Substance: CARBOPLATIN
     Indication: Lung neoplasm malignant
  4. CARBOPLATIN [Concomitant]
     Active Substance: CARBOPLATIN
     Route: 041
     Dates: start: 20241214, end: 20241214
  5. PACLITAXEL [Concomitant]
     Active Substance: PACLITAXEL
     Indication: Lung neoplasm malignant
  6. PACLITAXEL [Concomitant]
     Active Substance: PACLITAXEL
     Route: 041
     Dates: start: 20241214, end: 20241214

REACTIONS (1)
  - Dry mouth [Recovering/Resolving]

NARRATIVE: CASE EVENT DATE: 20250107
